FAERS Safety Report 6589866-7 (Version None)
Quarter: 2010Q1

REPORT INFORMATION
  Report Type: 
  Country: None (occurrence: None)
  Receive Date: 20100212
  Receipt Date: 20100125
  Transmission Date: 20100710
  Serious: Yes (Other)
  Sender: FDA-Public Use
  Company Number: 2009-1701

PATIENT
  Age: 34 Year
  Sex: Female
  Weight: 52 kg

DRUGS (3)
  1. DYSPORT [Suspect]
     Indication: SKIN WRINKLING
     Dosage: 62.5 UNITS, ONCE, INTRAMUSCULAR
     Route: 030
     Dates: start: 20090722, end: 20090722
  2. ZOLPIDEM [Concomitant]
  3. NIACINAMIDE VITAMIN (NICOTINAMIDE) [Concomitant]

REACTIONS (20)
  - ANXIETY [None]
  - BLOOD POTASSIUM DECREASED [None]
  - DISTURBANCE IN ATTENTION [None]
  - DIZZINESS [None]
  - DRY MOUTH [None]
  - HEAD DISCOMFORT [None]
  - HEART RATE INCREASED [None]
  - HYPERSENSITIVITY [None]
  - HYPOAESTHESIA [None]
  - HYPOAESTHESIA ORAL [None]
  - INSOMNIA [None]
  - MUSCULAR WEAKNESS [None]
  - NASAL CONGESTION [None]
  - PERIPHERAL COLDNESS [None]
  - PRESYNCOPE [None]
  - PYREXIA [None]
  - RESPIRATION ABNORMAL [None]
  - RESPIRATORY RATE INCREASED [None]
  - SENSATION OF HEAVINESS [None]
  - THIRST [None]
